FAERS Safety Report 4527723-8 (Version None)
Quarter: 2004Q4

REPORT INFORMATION
  Report Type: 
  Country: None (occurrence: None)
  Receive Date: 20041122
  Receipt Date: 20040420
  Transmission Date: 20050328
  Serious: No
  Sender: FDA-Public Use
  Company Number: 2004-0006944

PATIENT
  Age: 66 Year
  Sex: Male
  Weight: 66.2252 kg

DRUGS (3)
  1. HEPSERA [Suspect]
     Indication: HEPATITIS B
     Dosage: 10 MG, 1 IN 1 D, ORAL
     Route: 048
     Dates: start: 20040317, end: 20040401
  2. HEPSERA [Suspect]
     Indication: HEPATITIS B
     Dosage: 10 MG, 1 IN 1 D, ORAL
     Route: 048
     Dates: start: 20040408, end: 20040413
  3. EPIVIR [Concomitant]

REACTIONS (1)
  - DERMATITIS ALLERGIC [None]
